FAERS Safety Report 8419192-2 (Version None)
Quarter: 2012Q2

REPORT INFORMATION
  Report Type: 
  Country: None (occurrence: None)
  Receive Date: 20120607
  Receipt Date: 20120530
  Transmission Date: 20120825
  Serious: Yes (Other)
  Sender: FDA-Public Use
  Company Number: US-JNJFOC-20120521479

PATIENT

DRUGS (2)
  1. XARELTO [Suspect]
     Indication: POSTOPERATIVE ANALGESIA
     Route: 048
  2. XARELTO [Suspect]
     Indication: KNEE ARTHROPLASTY
     Route: 048

REACTIONS (1)
  - RENAL FAILURE [None]
